FAERS Safety Report 7678290-1 (Version None)
Quarter: 2011Q3

REPORT INFORMATION
  Report Type: 
  Country: None (occurrence: None)
  Receive Date: 20110811
  Receipt Date: 20110802
  Transmission Date: 20111222
  Serious: Yes (Hospitalization, Other)
  Sender: FDA-Public Use
  Company Number: PHHY2011JP70577

PATIENT
  Sex: Female

DRUGS (5)
  1. MUCOSTA [Concomitant]
     Dosage: 300 MG
     Route: 048
     Dates: start: 20100624
  2. LEVOTHYROXINE SODIUM [Concomitant]
     Dosage: 25 MG
     Route: 048
     Dates: start: 20101115
  3. LASIX [Concomitant]
     Dosage: 20 MG
     Route: 048
     Dates: start: 20100525
  4. AFINITOR [Suspect]
     Dosage: UNK UKN, UNK
     Route: 048
  5. AFINITOR [Suspect]
     Indication: METASTATIC RENAL CELL CARCINOMA
     Dosage: 5 MG, DAILY
     Route: 048
     Dates: start: 20110124

REACTIONS (3)
  - LEUKOENCEPHALOPATHY [None]
  - METASTASES TO CENTRAL NERVOUS SYSTEM [None]
  - EPILEPSY [None]
